FAERS Safety Report 11939350 (Version 1)
Quarter: 2016Q1

REPORT INFORMATION
  Report Type: Spontaneous
  Country: US (occurrence: US)
  Receive Date: 20160122
  Receipt Date: 20160122
  Transmission Date: 20160526
  Serious: No
  Sender: FDA-Public Use
  Company Number: US-BAUSCH-BL-2015-011209

PATIENT
  Age: 73 Year
  Sex: Male

DRUGS (1)
  1. CLINDAGEL [Suspect]
     Active Substance: CLINDAMYCIN PHOSPHATE
     Indication: ACNE
     Route: 061
     Dates: start: 20150407

REACTIONS (4)
  - Drug administration error [Recovered/Resolved]
  - Burning sensation [Recovered/Resolved]
  - Incorrect dose administered [None]
  - Pruritus [Recovered/Resolved]
